FAERS Safety Report 5002717-7 (Version None)
Quarter: 2006Q2

REPORT INFORMATION
  Report Type: 
  Country: None (occurrence: None)
  Receive Date: 20060516
  Receipt Date: 20060508
  Transmission Date: 20061013
  Serious: Yes (Other)
  Sender: FDA-Public Use
  Company Number: GB-JNJFOC-20060501762

PATIENT
  Sex: Male
  Weight: 59 kg

DRUGS (7)
  1. REMICADE [Suspect]
     Indication: RHEUMATOID ARTHRITIS
     Route: 042
  2. PREDNISOLONE [Concomitant]
     Route: 065
  3. CELEBREX [Concomitant]
     Route: 065
  4. DIDRONEL [Concomitant]
     Route: 065
  5. ISONIAZID [Concomitant]
     Route: 065
  6. METHOTREXATE [Concomitant]
     Route: 065
  7. PIRIDOXINE [Concomitant]
     Route: 065

REACTIONS (1)
  - B-CELL LYMPHOMA [None]
